FAERS Safety Report 21229958 (Version 1)
Quarter: 2022Q3

REPORT INFORMATION
  Report Type: Spontaneous
  Country: IN (occurrence: IN)
  Receive Date: 20220818
  Receipt Date: 20220818
  Transmission Date: 20221026
  Serious: Yes (Other)
  Sender: FDA-Public Use
  Company Number: IN-ViiV Healthcare Limited-IN2022GSK118227

PATIENT

DRUGS (3)
  1. LAMIVUDINE [Suspect]
     Active Substance: LAMIVUDINE
     Indication: HIV infection
     Dosage: UNK
  2. TENOFOVIR DISOPROXIL FUMARATE [Suspect]
     Active Substance: TENOFOVIR DISOPROXIL FUMARATE
     Indication: HIV infection
     Dosage: UNK
  3. EFAVIRENZ [Suspect]
     Active Substance: EFAVIRENZ
     Indication: HIV infection
     Dosage: UNK

REACTIONS (15)
  - Immune reconstitution inflammatory syndrome [Unknown]
  - Secondary syphilis [Unknown]
  - Skin hyperpigmentation [Unknown]
  - Skin lesion [Unknown]
  - Skin plaque [Unknown]
  - Skin exfoliation [Unknown]
  - Erythema [Unknown]
  - Non-scarring alopecia [Unknown]
  - Parakeratosis [Unknown]
  - Apoptosis [Unknown]
  - Lymphadenopathy [Unknown]
  - Lichenoid keratosis [Unknown]
  - Lymphocytic infiltration [Unknown]
  - Rash [Unknown]
  - Drug eruption [Unknown]
